FAERS Safety Report 6795578-7 (Version None)
Quarter: 2010Q2

REPORT INFORMATION
  Report Type: 
  Country: None (occurrence: None)
  Receive Date: 20100622
  Receipt Date: 20100609
  Transmission Date: 20101027
  Serious: Yes (Hospitalization)
  Sender: FDA-Public Use
  Company Number: 7007642

PATIENT
  Age: 52 Year
  Sex: Female

DRUGS (3)
  1. REBIF [Suspect]
     Indication: RELAPSING-REMITTING MULTIPLE SCLEROSIS
     Dosage: 22 MCG, 3 IN 1 WK, SUBCUTANEOUS
     Route: 058
     Dates: start: 20011201
  2. TRYPTANOL (AMITRIPTYLIN) (AMITRIPTYLINE) [Concomitant]
  3. OMEPRAZOLE [Concomitant]

REACTIONS (5)
  - ANAEMIA [None]
  - FEEDING DISORDER [None]
  - GAIT DISTURBANCE [None]
  - GASTRITIS [None]
  - URINARY TRACT INFECTION [None]
